FAERS Safety Report 6969275-9 (Version None)
Quarter: 2010Q3

REPORT INFORMATION
  Report Type: 
  Country: None (occurrence: None)
  Receive Date: 20100907
  Receipt Date: 20100825
  Transmission Date: 20110219
  Serious: Yes (Hospitalization, Other)
  Sender: FDA-Public Use
  Company Number: PHEH2008US07395

PATIENT
  Sex: Male

DRUGS (59)
  1. ZOMETA [Suspect]
     Dosage: UNK, UNK
     Route: 042
     Dates: end: 20060101
  2. RADIATION THERAPY [Concomitant]
  3. OXYCODONE [Concomitant]
  4. LOTREL [Concomitant]
  5. XANAX [Concomitant]
  6. ZOLOFT [Concomitant]
  7. TOPROL-XL [Concomitant]
  8. AMPICILLIN SODIUM [Concomitant]
  9. ACETAMINOPHEN [Concomitant]
  10. IBUPROFEN [Concomitant]
  11. PRILOSEC [Concomitant]
  12. ASPIRIN [Concomitant]
  13. MORPHINE [Concomitant]
  14. KETOROLAC [Concomitant]
  15. VISTARIL [Concomitant]
  16. PERCOCET [Concomitant]
  17. FOSAMAX [Concomitant]
     Dosage: UNK
  18. OXYCONTIN [Concomitant]
     Dosage: UNK
  19. COLACE [Concomitant]
     Dosage: UNK
  20. AVODART [Concomitant]
     Dosage: UNK
  21. FLOMAX [Concomitant]
     Dosage: UNK
  22. HYALURONATE SODIUM [Concomitant]
     Dosage: UNK
     Dates: start: 20090617
  23. PROMETHAZINE [Concomitant]
  24. SINGULAIR [Concomitant]
  25. ALPRAZOLAM [Concomitant]
  26. CHLORHEXIDINE GLUCONATE [Concomitant]
  27. MAGNESIUM OXIDE [Concomitant]
  28. AMBIEN [Concomitant]
  29. BIAXIN XL [Concomitant]
  30. PROPOXYPHENE NAPSYLATE W/ ACETAMINOPHEN [Concomitant]
  31. HYDROCODONE BITARTRATE AND ACETAMINOPHEN [Concomitant]
  32. HYDROMORPHONE HYDROCHLORIDE [Concomitant]
  33. GLYCOLAX [Concomitant]
  34. ZOFRAN [Concomitant]
  35. FENTANYL CITRATE [Concomitant]
  36. MEGESTROL ACETATE [Concomitant]
  37. THALOMID [Concomitant]
  38. UROXATRAL [Concomitant]
  39. DEXAMETHASONE [Concomitant]
  40. SANCTURA [Concomitant]
  41. CEPHALEXIN [Concomitant]
  42. TEQUIN [Concomitant]
  43. BENZONATATE [Concomitant]
  44. ALBUTEROL [Concomitant]
  45. ADVAIR DISKUS 100/50 [Concomitant]
  46. PROPAFENONE HCL [Concomitant]
  47. ZITHROMAX [Concomitant]
  48. PREDNISONE [Concomitant]
  49. FLUCONAZOLE [Concomitant]
  50. CLOTRIMAZOLE [Concomitant]
  51. DEMEROL [Concomitant]
  52. VERSED [Concomitant]
     Dosage: 3 MG
     Route: 042
  53. MIRALAX [Concomitant]
  54. LIBRAX [Concomitant]
     Dosage: THRICE A DAY
     Route: 048
  55. LEVSIN [Concomitant]
  56. VICODIN [Concomitant]
  57. MAALOX                                  /NET/ [Concomitant]
  58. AMOXICILLIN [Concomitant]
  59. BENEFIBER [Concomitant]
     Indication: CONSTIPATION

REACTIONS (93)
  - ABDOMINAL DISTENSION [None]
  - ACQUIRED OESOPHAGEAL WEB [None]
  - ACTIVITIES OF DAILY LIVING IMPAIRED [None]
  - ANHEDONIA [None]
  - ANXIETY [None]
  - ARTHRALGIA [None]
  - ARTHROPATHY [None]
  - ASTHENIA [None]
  - ATRIAL FIBRILLATION [None]
  - BACK PAIN [None]
  - BALANCE DISORDER [None]
  - BLINDNESS [None]
  - BODY TEMPERATURE INCREASED [None]
  - BONE OPERATION [None]
  - CARDIAC ABLATION [None]
  - CATARACT OPERATION [None]
  - CHOLECYSTECTOMY [None]
  - CHOLECYSTITIS INFECTIVE [None]
  - CHOLELITHIASIS [None]
  - COMPRESSION FRACTURE [None]
  - CONSTIPATION [None]
  - CONTUSION [None]
  - CYSTITIS [None]
  - DEBRIDEMENT [None]
  - DENTAL CARIES [None]
  - DEPRESSION [None]
  - DEVICE BREAKAGE [None]
  - DIARRHOEA [None]
  - DIVERTICULUM [None]
  - DYSGEUSIA [None]
  - DYSPHAGIA [None]
  - EYE PAIN [None]
  - FALL [None]
  - FATIGUE [None]
  - FEBRILE NEUTROPENIA [None]
  - FLANK PAIN [None]
  - GAIT DISTURBANCE [None]
  - GINGIVAL PAIN [None]
  - HAEMATURIA [None]
  - HAEMORRHOID OPERATION [None]
  - HEADACHE [None]
  - HEARING IMPAIRED [None]
  - HIATUS HERNIA [None]
  - HICCUPS [None]
  - HYPERBARIC OXYGEN THERAPY [None]
  - IMPAIRED HEALING [None]
  - IMPAIRED WORK ABILITY [None]
  - INFECTION [None]
  - INGUINAL HERNIA [None]
  - INGUINAL HERNIA REPAIR [None]
  - INJURY [None]
  - IRRITABLE BOWEL SYNDROME [None]
  - LASER THERAPY [None]
  - LIPOMA [None]
  - LIPOMA EXCISION [None]
  - MASTICATION DISORDER [None]
  - MICTURITION URGENCY [None]
  - NAUSEA [None]
  - NOCTURIA [None]
  - OESOPHAGEAL OBSTRUCTION [None]
  - OSTEOMYELITIS [None]
  - OSTEONECROSIS OF JAW [None]
  - PAIN [None]
  - PAIN IN JAW [None]
  - PARAESTHESIA [None]
  - PEPTIC ULCER [None]
  - PERIODONTITIS [None]
  - PLASMACYTOMA [None]
  - PNEUMONIA [None]
  - POLLAKIURIA [None]
  - POSTERIOR CAPSULE OPACIFICATION [None]
  - POSTERIOR CAPSULOTOMY [None]
  - PROSTATIC OBSTRUCTION [None]
  - PROSTATIC SPECIFIC ANTIGEN INCREASED [None]
  - PULPITIS DENTAL [None]
  - RECTAL HAEMORRHAGE [None]
  - RENAL DISORDER [None]
  - SICK SINUS SYNDROME [None]
  - STEM CELL TRANSPLANT [None]
  - STRESS [None]
  - TINNITUS [None]
  - TOOTH EXTRACTION [None]
  - TOOTH LOSS [None]
  - TOOTHACHE [None]
  - URINARY HESITATION [None]
  - URINARY INCONTINENCE [None]
  - URINARY TRACT INFECTION [None]
  - VERTEBROPLASTY [None]
  - VISION BLURRED [None]
  - VISUAL IMPAIRMENT [None]
  - VOMITING [None]
  - WEIGHT DECREASED [None]
  - WEIGHT INCREASED [None]
